APPROVED DRUG PRODUCT: MECLIZINE HYDROCHLORIDE
Active Ingredient: MECLIZINE HYDROCHLORIDE
Strength: 50MG
Dosage Form/Route: TABLET;ORAL
Application: A089674 | Product #001
Applicant: STRIDES PHARMA INTERNATIONAL AG
Approved: Mar 31, 1988 | RLD: No | RS: No | Type: DISCN